FAERS Safety Report 5737354-X (Version None)
Quarter: 2008Q2

REPORT INFORMATION
  Report Type: 
  Country: None (occurrence: None)
  Receive Date: 20080514
  Receipt Date: 20080506
  Transmission Date: 20081010
  Serious: Yes (Other)
  Sender: FDA-Public Use
  Company Number: PHHY2008IT07447

PATIENT
  Age: 84 Year
  Sex: Female

DRUGS (7)
  1. ZOMETA [Suspect]
     Indication: METASTASES TO BONE
     Dosage: 4 MG, QMO
     Route: 042
     Dates: start: 20051101, end: 20060930
  2. FULVESTRANT [Concomitant]
     Route: 030
  3. ASPIRIN [Concomitant]
     Dosage: 100 MG
     Route: 048
  4. LASITONE [Concomitant]
     Dosage: 25 MG
     Route: 048
  5. ENAPREN [Concomitant]
     Route: 048
  6. AMIODAR [Concomitant]
  7. AUGMENTIN '125' [Concomitant]

REACTIONS (1)
  - OSTEONECROSIS [None]
